FAERS Safety Report 8213306-5 (Version None)
Quarter: 2012Q1

REPORT INFORMATION
  Report Type: 
  Country: None (occurrence: None)
  Receive Date: 20120315
  Receipt Date: 20120309
  Transmission Date: 20120608
  Serious: Yes (Hospitalization)
  Sender: FDA-Public Use
  Company Number: PHEH2012US005271

PATIENT
  Sex: Female

DRUGS (4)
  1. CONTRACEPTIVES [Concomitant]
     Route: 048
  2. GILENYA [Suspect]
     Indication: MULTIPLE SCLEROSIS
     Dosage: 0.5 MG, QD
     Route: 048
  3. WELLBUTRIN [Concomitant]
     Dosage: 300 MG, PER DAY
     Route: 048
  4. ZYRTEC [Concomitant]

REACTIONS (6)
  - HAEMANGIOMA OF LIVER [None]
  - VOMITING [None]
  - ABDOMINAL PAIN [None]
  - NAUSEA [None]
  - LEUKOCYTOSIS [None]
  - DIARRHOEA [None]
